FAERS Safety Report 13643139 (Version 6)
Quarter: 2017Q3

REPORT INFORMATION
  Report Type: Spontaneous
  Country: BR (occurrence: BR)
  Receive Date: 20170612
  Receipt Date: 20170711
  Transmission Date: 20171127
  Serious: Yes (Other)
  Sender: FDA-Public Use
  Company Number: PHHY2017BR083110

PATIENT
  Age: 30 Year
  Sex: Male
  Weight: 84 kg

DRUGS (5)
  1. FLUOXETINE [Concomitant]
     Active Substance: FLUOXETINE HYDROCHLORIDE
     Indication: DEPRESSION
     Dosage: 2 DF, QD
     Route: 048
     Dates: start: 2013
  2. BUPROPION. [Concomitant]
     Active Substance: BUPROPION
     Indication: PRODUCT USED FOR UNKNOWN INDICATION
     Dosage: 1 DF, QD
     Route: 048
     Dates: start: 2013
  3. RITALIN LA [Suspect]
     Active Substance: METHYLPHENIDATE HYDROCHLORIDE
     Indication: PSYCHOMOTOR HYPERACTIVITY
     Dosage: 2 DF, QD
     Route: 055
  4. RITALIN LA [Suspect]
     Active Substance: METHYLPHENIDATE HYDROCHLORIDE
     Indication: DEPRESSION
  5. RITALIN LA [Suspect]
     Active Substance: METHYLPHENIDATE HYDROCHLORIDE
     Indication: HYPERSOMNIA
     Dosage: QD, 2 TO 6 CAPSULE PER DAY
     Route: 055
     Dates: start: 2013

REACTIONS (11)
  - Dysuria [Recovered/Resolved]
  - Drug dependence [Unknown]
  - Sleep paralysis [Unknown]
  - Incorrect route of drug administration [Unknown]
  - Depressed mood [Unknown]
  - Irritability [Unknown]
  - Product use in unapproved indication [Unknown]
  - Anxiety [Unknown]
  - Product taste abnormal [Unknown]
  - Acne [Recovered/Resolved]
  - Incontinence [Not Recovered/Not Resolved]
